FAERS Safety Report 20076999 (Version 1)
Quarter: 2021Q4

REPORT INFORMATION
  Report Type: Spontaneous
  Country: PL (occurrence: PL)
  Receive Date: 20211116
  Receipt Date: 20211116
  Transmission Date: 20220303
  Serious: Yes (Life-Threatening)
  Sender: FDA-Public Use
  Company Number: None

PATIENT
  Age: 60 Year
  Sex: Female
  Weight: 74 kg

DRUGS (1)
  1. OXALIPLATIN [Suspect]
     Active Substance: OXALIPLATIN
     Indication: Colon cancer
     Route: 042
     Dates: start: 20210226, end: 20210226

REACTIONS (4)
  - Blood pressure decreased [Unknown]
  - Erythema [Unknown]
  - Dyspnoea [Unknown]
  - Seizure [Unknown]

NARRATIVE: CASE EVENT DATE: 20210226
